FAERS Safety Report 6495095-8 (Version None)
Quarter: 2009Q4

REPORT INFORMATION
  Report Type: 
  Country: None (occurrence: None)
  Receive Date: 20091214
  Receipt Date: 20090430
  Transmission Date: 20100525
  Serious: No
  Sender: FDA-Public Use
  Company Number: US-BRISTOL-MYERS SQUIBB COMPANY-14607097

PATIENT
  Age: 7 Year
  Sex: Male

DRUGS (4)
  1. ABILIFY [Suspect]
     Indication: ATTENTION DEFICIT/HYPERACTIVITY DISORDER
  2. ABILIFY [Suspect]
     Indication: OBSESSIVE-COMPULSIVE DISORDER
  3. ADDERALL 10 [Concomitant]
  4. CLONIDINE [Concomitant]

REACTIONS (1)
  - DYSTONIA [None]
